FAERS Safety Report 8799087 (Version 2)
Quarter: 2013Q3

REPORT INFORMATION
  Report Type: Spontaneous
  Country: US (occurrence: US)
  Receive Date: 20120920
  Receipt Date: 20130919
  Transmission Date: 20140515
  Serious: No
  Sender: FDA-Public Use
  Company Number: US-ASTRAZENECA-2011SE62789

PATIENT
  Age: 63 Year
  Sex: Female
  Weight: 62.1 kg

DRUGS (12)
  1. LISINOPRIL [Suspect]
     Route: 048
  2. LISINOPRIL [Suspect]
     Route: 048
  3. ENTOCORT EC [Suspect]
     Indication: COLITIS MICROSCOPIC
     Route: 048
     Dates: start: 20130909
  4. HYDROCHLOROTHIAZIDE [Suspect]
     Route: 048
  5. HYDROCHLOROTHIAZIDE [Suspect]
     Route: 048
  6. HYDROCHLOROTHIAZIDE [Suspect]
     Route: 048
  7. HYDROCHLOROTHIAZIDE [Suspect]
     Route: 048
  8. NORVASC [Suspect]
     Route: 065
     Dates: end: 2011
  9. PLAVIX [Suspect]
     Indication: MIGRAINE WITH AURA
     Route: 048
     Dates: start: 20110526
  10. PLAVIX [Suspect]
     Indication: TRANSIENT ISCHAEMIC ATTACK
     Route: 048
     Dates: start: 20110526
  11. METFORMIN [Concomitant]
  12. OTHER LIPID MODIFYIG AGENTS [Concomitant]

REACTIONS (12)
  - Epistaxis [Unknown]
  - Contusion [Unknown]
  - Gingival bleeding [Unknown]
  - Heart rate decreased [Unknown]
  - Weight decreased [Unknown]
  - Local swelling [Unknown]
  - Pain [Unknown]
  - Pharyngeal oedema [Not Recovered/Not Resolved]
  - Face oedema [Unknown]
  - Adverse reaction [Unknown]
  - Off label use [Unknown]
  - Drug dose omission [Unknown]
